FAERS Safety Report 8593490-4 (Version None)
Quarter: 2012Q3

REPORT INFORMATION
  Report Type: 
  Country: None (occurrence: None)
  Receive Date: 20120814
  Receipt Date: 20120809
  Transmission Date: 20120928
  Serious: Yes (Other)
  Sender: FDA-Public Use
  Company Number: US-PFIZER INC-2012194926

PATIENT

DRUGS (1)
  1. TORISEL [Suspect]
     Indication: RENAL CELL CARCINOMA
     Dosage: UNK

REACTIONS (4)
  - PNEUMONITIS [None]
  - RENAL CANCER [None]
  - PULMONARY FIBROSIS [None]
  - DISEASE PROGRESSION [None]
